FAERS Safety Report 11390699 (Version 1)
Quarter: 2015Q3

REPORT INFORMATION
  Report Type: Spontaneous
  Country: DE (occurrence: None)
  Receive Date: 20150813
  Receipt Date: 20150813
  Transmission Date: 20151125
  Serious: Yes (Hospitalization)
  Sender: FDA-Public Use
  Company Number: 1661879

PATIENT
  Age: 74 Year
  Sex: Male

DRUGS (6)
  1. SERTRALINE [Concomitant]
     Active Substance: SERTRALINE HYDROCHLORIDE
  2. VENLAFAXINE [Suspect]
     Active Substance: VENLAFAXINE HYDROCHLORIDE
     Indication: DEPRESSION
  3. VALPROIC ACID. [Concomitant]
     Active Substance: VALPROIC ACID
  4. PROMIDONE [Suspect]
     Active Substance: PRIMIDONE
     Indication: DEPRESSION
  5. LITHIUM. [Suspect]
     Active Substance: LITHIUM
     Indication: DEPRESSION
  6. MOCLOBEMID [Concomitant]
     Active Substance: MOCLOBEMIDE

REACTIONS (4)
  - Disturbance in attention [None]
  - Cognitive disorder [None]
  - Positron emission tomogram abnormal [None]
  - Memory impairment [None]
